FAERS Safety Report 7367071-4 (Version None)
Quarter: 2011Q1

REPORT INFORMATION
  Report Type: 
  Country: None (occurrence: None)
  Receive Date: 20110322
  Receipt Date: 20100706
  Transmission Date: 20110831
  Serious: No
  Sender: FDA-Public Use
  Company Number: US-TYCO HEALTHCARE/MALLINCKRODT-T201001569

PATIENT
  Sex: Female
  Weight: 72.562 kg

DRUGS (2)
  1. METHADONE [Suspect]
     Indication: PAIN
     Dosage: 12 TABLETS QD
     Route: 048
     Dates: start: 20090101
  2. ASPIRIN [Concomitant]

REACTIONS (1)
  - DRUG SCREEN NEGATIVE [None]
